FAERS Safety Report 7620321-9 (Version None)
Quarter: 2011Q3

REPORT INFORMATION
  Report Type: 
  Country: None (occurrence: None)
  Receive Date: 20110719
  Receipt Date: 20110707
  Transmission Date: 20111222
  Serious: Yes (Hospitalization)
  Sender: FDA-Public Use
  Company Number: PHHY2011NL60874

PATIENT
  Age: 49 Year
  Sex: Male

DRUGS (2)
  1. AMITRIPTYLINE HCL [Suspect]
     Dosage: 190 DF
     Route: 048
  2. ALCOHOL [Concomitant]
     Route: 048

REACTIONS (13)
  - TOXICITY TO VARIOUS AGENTS [None]
  - FEELING HOT [None]
  - BODY TEMPERATURE DECREASED [None]
  - ACCELERATED IDIOVENTRICULAR RHYTHM [None]
  - GRAND MAL CONVULSION [None]
  - CENTRAL VENOUS PRESSURE INCREASED [None]
  - DRUG LEVEL INCREASED [None]
  - HEART RATE INCREASED [None]
  - RESPIRATORY ACIDOSIS [None]
  - HYPOTENSION [None]
  - COMA [None]
  - OVERDOSE [None]
  - ELECTROCARDIOGRAM QRS COMPLEX PROLONGED [None]
